FAERS Safety Report 16216814 (Version 2)
Quarter: 2020Q1

REPORT INFORMATION
  Report Type: Report from Study
  Country: US (occurrence: US)
  Receive Date: 20190419
  Receipt Date: 20200225
  Transmission Date: 20200409
  Serious: Yes (Death, Disabling)
  Sender: FDA-Public Use
  Company Number: PHEH2019US016691

PATIENT
  Age: 79 Year
  Sex: Male

DRUGS (1)
  1. GLEEVEC [Suspect]
     Active Substance: IMATINIB MESYLATE
     Indication: PRODUCT USED FOR UNKNOWN INDICATION
     Route: 065

REACTIONS (2)
  - Blindness [Unknown]
  - Death [Fatal]

NARRATIVE: CASE EVENT DATE: 20191219
